FAERS Safety Report 8121757-2 (Version None)
Quarter: 2012Q1

REPORT INFORMATION
  Report Type: 
  Country: None (occurrence: None)
  Receive Date: 20120207
  Receipt Date: 20120207
  Transmission Date: 20120608
  Serious: Yes (Life-Threatening, Hospitalization)
  Sender: FDA-Public Use
  Company Number: None

PATIENT
  Sex: Female
  Weight: 63.5036 kg

DRUGS (1)
  1. PLAVIX [Suspect]
     Indication: VASCULAR OPERATION
     Dosage: 1 DAILY
     Dates: start: 20111026, end: 20111109

REACTIONS (1)
  - HAEMORRHAGIC ANAEMIA [None]
